FAERS Safety Report 17143653 (Version 1)
Quarter: 2019Q4

REPORT INFORMATION
  Report Type: Spontaneous
  Country: US (occurrence: US)
  Receive Date: 20191212
  Receipt Date: 20191212
  Transmission Date: 20200122
  Serious: No
  Sender: FDA-Public Use
  Company Number: US-PFIZER INC-2019531500

PATIENT
  Age: 56 Year
  Sex: Male

DRUGS (4)
  1. MEDROL [Suspect]
     Active Substance: METHYLPREDNISOLONE
     Indication: COUGH
  2. MEDROL [Suspect]
     Active Substance: METHYLPREDNISOLONE
     Indication: HEAD DISCOMFORT
  3. MEDROL [Suspect]
     Active Substance: METHYLPREDNISOLONE
     Indication: RESPIRATORY TRACT CONGESTION
     Dosage: UNK
  4. ENBREL [Concomitant]
     Active Substance: ETANERCEPT
     Indication: RHEUMATOID ARTHRITIS
     Dosage: 50 MILLIGRAM, QWK
     Route: 065

REACTIONS (2)
  - Off label use [Unknown]
  - Drug ineffective for unapproved indication [Unknown]
